FAERS Safety Report 4288527-7 (Version None)
Quarter: 2004Q1

REPORT INFORMATION
  Report Type: 
  Country: None (occurrence: None)
  Receive Date: 20040205
  Receipt Date: 20040119
  Transmission Date: 20041129
  Serious: Yes (Hospitalization)
  Sender: FDA-Public Use
  Company Number: GBS040114298

PATIENT
  Sex: Male
  Weight: 3 kg

DRUGS (2)
  1. FLUOXETINE HCL [Suspect]
     Dates: start: 20030313, end: 20031110
  2. AMOXICILLIN [Concomitant]

REACTIONS (2)
  - BRADYCARDIA NEONATAL [None]
  - DRUG EXPOSURE DURING PREGNANCY [None]
